FAERS Safety Report 24652922 (Version 4)
Quarter: 2025Q1

REPORT INFORMATION
  Report Type: Spontaneous
  Country: US (occurrence: US)
  Receive Date: 20241122
  Receipt Date: 20250225
  Transmission Date: 20250408
  Serious: No
  Sender: BRISTOL-MYERS SQUIBB COMPANY
  Company Number: US-BRISTOL-MYERS SQUIBB COMPANY-2024-182967

PATIENT
  Age: 78 Year
  Sex: Female

DRUGS (4)
  1. SPRYCEL [Suspect]
     Active Substance: DASATINIB
     Indication: Chronic myeloid leukaemia
     Route: 048
     Dates: start: 202410
  2. SPRYCEL [Suspect]
     Active Substance: DASATINIB
     Indication: Lymphocytic leukaemia
     Route: 048
     Dates: start: 202410
  3. SPRYCEL [Suspect]
     Active Substance: DASATINIB
     Route: 048
     Dates: start: 202410
  4. SPRYCEL [Suspect]
     Active Substance: DASATINIB
     Route: 048

REACTIONS (8)
  - Cough [Unknown]
  - Dyspnoea [Unknown]
  - Fatigue [Unknown]
  - Heart valve incompetence [Unknown]
  - Off label use [Unknown]
  - Myalgia [Unknown]
  - Pain [Unknown]
  - Liver function test increased [Unknown]
